FAERS Safety Report 16443537 (Version 1)
Quarter: 2019Q2

REPORT INFORMATION
  Report Type: Spontaneous
  Country: US (occurrence: US)
  Receive Date: 20190618
  Receipt Date: 20190618
  Transmission Date: 20190711
  Serious: No
  Sender: FDA-Public Use
  Company Number: US-AMGEN-USASP2019094690

PATIENT
  Age: 70 Year
  Sex: Female

DRUGS (9)
  1. VIGAMOX [Concomitant]
     Active Substance: MOXIFLOXACIN HYDROCHLORIDE
     Dosage: UNK
  2. ENBREL [Suspect]
     Active Substance: ETANERCEPT
     Dosage: 50 MILLIGRAM, QWK
     Route: 058
  3. ALPHAGAN P [Concomitant]
     Active Substance: BRIMONIDINE TARTRATE
     Dosage: UNK
  4. XIIDRA [Concomitant]
     Active Substance: LIFITEGRAST
     Dosage: UNK
  5. ENBREL [Suspect]
     Active Substance: ETANERCEPT
     Indication: PSORIATIC ARTHROPATHY
     Dosage: 50 MILLIGRAM, QWK
     Route: 058
     Dates: start: 20160411
  6. RESTASIS [Concomitant]
     Active Substance: CYCLOSPORINE
     Dosage: UNK
  7. PROGESTERONE. [Concomitant]
     Active Substance: PROGESTERONE
     Dosage: 200 MILLIGRAM
  8. ESTRING [Concomitant]
     Active Substance: ESTRADIOL
     Dosage: 2 MILLIGRAM
  9. DUREZOL [Concomitant]
     Active Substance: DIFLUPREDNATE
     Dosage: UNK

REACTIONS (1)
  - Ill-defined disorder [Unknown]
